FAERS Safety Report 7665278-X (Version None)
Quarter: 2011Q3

REPORT INFORMATION
  Report Type: 
  Country: None (occurrence: None)
  Receive Date: 20110806
  Receipt Date: 20110606
  Transmission Date: 20111222
  Serious: No
  Sender: FDA-Public Use
  Company Number: US-ABBOTT-11P-163-0727152-00

PATIENT
  Sex: Female
  Weight: 65.83 kg

DRUGS (6)
  1. ASPIRIN [Concomitant]
     Indication: PRODUCT USED FOR UNKNOWN INDICATION
  2. NIASPAN [Suspect]
     Indication: BLOOD CHOLESTEROL INCREASED
     Dosage: 1000 MG
     Dates: start: 20110401, end: 20110401
  3. NIASPAN [Suspect]
     Dates: start: 20110519
  4. HYDROQUINON CREAM [Concomitant]
     Indication: PRODUCT USED FOR UNKNOWN INDICATION
  5. THYROID TAB [Concomitant]
     Indication: THYROID DISORDER
  6. MULTI-VITAMIN [Concomitant]
     Indication: VITAMIN SUPPLEMENTATION

REACTIONS (5)
  - NAUSEA [None]
  - DISORIENTATION [None]
  - ABDOMINAL DISCOMFORT [None]
  - BURNING SENSATION [None]
  - FLUSHING [None]
